FAERS Safety Report 18655884 (Version 15)
Quarter: 2023Q1

REPORT INFORMATION
  Report Type: Report from Study
  Country: US (occurrence: US)
  Receive Date: 20201223
  Receipt Date: 20230317
  Transmission Date: 20230418
  Serious: Yes (Hospitalization, Other)
  Sender: FDA-Public Use
  Company Number: US-TAKEDA-US202014707

PATIENT
  Age: 64 Year
  Sex: Female
  Weight: 77 kg

DRUGS (31)
  1. VELAGLUCERASE ALFA [Suspect]
     Active Substance: VELAGLUCERASE ALFA
     Indication: Gaucher^s disease
     Dosage: 9200 INTERNATIONAL UNIT, Q4WEEKS
     Route: 042
     Dates: start: 20180214
  2. VELAGLUCERASE ALFA [Suspect]
     Active Substance: VELAGLUCERASE ALFA
     Dosage: 9200 INTERNATIONAL UNIT, Q4WEEKS
     Route: 042
  3. VELAGLUCERASE ALFA [Suspect]
     Active Substance: VELAGLUCERASE ALFA
     Dosage: 9600 INTERNATIONAL UNIT, Q4WEEKS
     Route: 042
     Dates: start: 20180215
  4. ACETAMINOPHEN [Concomitant]
     Active Substance: ACETAMINOPHEN
     Route: 065
  5. DIPHENHYDRAMINE HYDROCHLORIDE [Concomitant]
     Active Substance: DIPHENHYDRAMINE HYDROCHLORIDE
     Route: 065
  6. HYDROCORTISONE [Concomitant]
     Active Substance: HYDROCORTISONE
     Route: 065
  7. SODIUM CHLORIDE [Concomitant]
     Active Substance: SODIUM CHLORIDE
     Route: 065
  8. ALIGN [Concomitant]
     Active Substance: BIFIDOBACTERIUM LONGUM SUBSP. INFANTIS
     Route: 065
  9. STERILE WATER [Concomitant]
     Active Substance: WATER
     Route: 065
  10. EPINEPHRINE [Concomitant]
     Active Substance: EPINEPHRINE
     Route: 065
  11. CLARITIN-D NOS [Concomitant]
     Active Substance: LORATADINE\PSEUDOEPHEDRINE SULFATE
     Route: 065
  12. VITAMIN D3 [Concomitant]
     Active Substance: CHOLECALCIFEROL
     Route: 065
  13. FLUBLOK QUADRIVALENT NOS [Concomitant]
     Active Substance: INFLUENZA VIRUS VACCINE
     Route: 065
  14. VALACYCLOVIR [Concomitant]
     Active Substance: VALACYCLOVIR HYDROCHLORIDE
  15. MOMETASONE FUROATE [Concomitant]
     Active Substance: MOMETASONE FUROATE
     Route: 065
  16. CETIRIZINE [Concomitant]
     Active Substance: CETIRIZINE HYDROCHLORIDE
     Route: 065
  17. IBUPROFEN [Concomitant]
     Active Substance: IBUPROFEN
     Route: 065
  18. ESTRACE [Concomitant]
     Active Substance: ESTRADIOL
     Route: 065
  19. PROGESTERONE [Concomitant]
     Active Substance: PROGESTERONE
     Route: 065
  20. EPIPEN [Concomitant]
     Active Substance: EPINEPHRINE
     Route: 065
  21. ALENDRONATE [Concomitant]
     Active Substance: ALENDRONATE SODIUM
     Route: 065
  22. SODIUM CHLORIDE [Concomitant]
     Active Substance: SODIUM CHLORIDE
  23. CALCIUM CITRATE [Concomitant]
     Active Substance: CALCIUM CITRATE
  24. XYZAL [Concomitant]
     Active Substance: LEVOCETIRIZINE DIHYDROCHLORIDE
  25. ZYRTEC [Concomitant]
     Active Substance: CETIRIZINE HYDROCHLORIDE
  26. PFIZER-BIONTECH COVID-19 VACCINE [Concomitant]
     Active Substance: TOZINAMERAN
  27. TOBRAMYCIN AND DEXAMETHASONE [Concomitant]
     Active Substance: DEXAMETHASONE\TOBRAMYCIN
  28. SUDAFED [Concomitant]
     Active Substance: PSEUDOEPHEDRINE HYDROCHLORIDE
  29. METRONIDAZOLE [Concomitant]
     Active Substance: METRONIDAZOLE
  30. CALCIUM CITRATE\CHOLECALCIFEROL [Concomitant]
     Active Substance: CALCIUM CITRATE\CHOLECALCIFEROL
  31. MUCINEX [Concomitant]
     Active Substance: GUAIFENESIN

REACTIONS (27)
  - Staphylococcal infection [Unknown]
  - Upper limb fracture [Unknown]
  - Malignant melanoma [Unknown]
  - Foot fracture [Unknown]
  - Lumbar vertebral fracture [Unknown]
  - Wrist fracture [Unknown]
  - Fall [Unknown]
  - Pain in extremity [Unknown]
  - Infusion site swelling [Unknown]
  - Influenza like illness [Unknown]
  - Hypoaesthesia [Unknown]
  - Conjunctivitis [Recovered/Resolved]
  - Multiple allergies [Unknown]
  - Muscle strain [Unknown]
  - Frustration tolerance decreased [Unknown]
  - Blood pressure fluctuation [Unknown]
  - Obstruction [Unknown]
  - Cough [Unknown]
  - Oxygen saturation decreased [Unknown]
  - Musculoskeletal chest pain [Unknown]
  - Heart rate irregular [Unknown]
  - Rash macular [Unknown]
  - Rash pruritic [Unknown]
  - Headache [Recovered/Resolved]
  - Hypertension [Unknown]
  - Dyspnoea [Unknown]
  - Product preparation issue [Unknown]

NARRATIVE: CASE EVENT DATE: 20200506
